FAERS Safety Report 13179957 (Version 2)
Quarter: 2017Q1

REPORT INFORMATION
  Report Type: Report from Study
  Country: JP (occurrence: JP)
  Receive Date: 20170202
  Receipt Date: 20170212
  Transmission Date: 20170428
  Serious: Yes (Other)
  Sender: FDA-Public Use
  Company Number: JP-AMGEN-JPNSP2017017144

PATIENT
  Age: 73 Year

DRUGS (3)
  1. CINACALCET HCL [Suspect]
     Active Substance: CINACALCET HYDROCHLORIDE
     Indication: PRODUCT USED FOR UNKNOWN INDICATION
     Dosage: 25 MG, QD
     Route: 048
     Dates: start: 20151215, end: 20160208
  2. CINACALCET HCL [Suspect]
     Active Substance: CINACALCET HYDROCHLORIDE
     Dosage: 21 MG, QD
     Route: 048
     Dates: start: 20160609
  3. CINACALCET HCL [Suspect]
     Active Substance: CINACALCET HYDROCHLORIDE
     Dosage: 25 MG, QD
     Route: 048
     Dates: start: 20160216

REACTIONS (8)
  - Excoriation [Recovered/Resolved]
  - Excoriation [Recovered/Resolved]
  - Excoriation [Recovered/Resolved]
  - Vomiting [Recovered/Resolved]
  - Bundle branch block right [Not Recovered/Not Resolved]
  - Haemorrhage subcutaneous [Recovering/Resolving]
  - Upper respiratory tract inflammation [Recovered/Resolved]
  - Excoriation [Recovered/Resolved]

NARRATIVE: CASE EVENT DATE: 20151215
